FAERS Safety Report 8032685-5 (Version None)
Quarter: 2012Q1

REPORT INFORMATION
  Report Type: 
  Country: None (occurrence: None)
  Receive Date: 20120110
  Receipt Date: 20120104
  Transmission Date: 20120608
  Serious: Yes (Death)
  Sender: FDA-Public Use
  Company Number: US-CELGENEUS-163-21880-12010333

PATIENT
  Sex: Female

DRUGS (4)
  1. REVLIMID [Suspect]
     Indication: MULTIPLE MYELOMA
     Dosage: 5 MILLIGRAM
     Route: 048
     Dates: start: 20060601, end: 20060101
  2. REVLIMID [Suspect]
     Dosage: 5MG - 10MG - 15MG - 20MG
     Route: 048
     Dates: start: 20070901, end: 20090101
  3. REVLIMID [Suspect]
     Dosage: 10 MILLIGRAM
     Route: 048
     Dates: start: 20090701, end: 20110101
  4. REVLIMID [Suspect]
     Dosage: 5MG - 10MG
     Route: 048
     Dates: start: 20110401, end: 20111201

REACTIONS (1)
  - DEATH [None]
